FAERS Safety Report 5211562-9 (Version None)
Quarter: 2007Q1

REPORT INFORMATION
  Report Type: 
  Country: None (occurrence: None)
  Receive Date: 20070116
  Receipt Date: 20070116
  Transmission Date: 20070707
  Serious: Yes (Life-Threatening, Disabling)
  Sender: FDA-Public Use
  Company Number: None

PATIENT
  Sex: Male
  Weight: 79.3795 kg

DRUGS (9)
  1. ALBUTEROL [Suspect]
     Indication: BACK PAIN
     Dates: start: 19960810
  2. ALBUTEROL [Suspect]
     Indication: DISTURBANCE IN ATTENTION
     Dates: start: 19960810
  3. ALBUTEROL [Suspect]
     Indication: MEMORY IMPAIRMENT
     Dates: start: 19960810
  4. ALBUTEROL [Suspect]
     Indication: OSTEOARTHRITIS
     Dates: start: 19960810
  5. ALBUTEROL [Suspect]
     Indication: RESPIRATORY TRACT INFECTION
     Dates: start: 19960810
  6. TRIAMCINOLONE ACETONIDE [Suspect]
     Indication: BRAIN NEOPLASM
     Route: 045
     Dates: start: 19960810
  7. TRIAMCINOLONE ACETONIDE [Suspect]
     Indication: NASAL SEPTUM DEVIATION
     Route: 045
     Dates: start: 19960810
  8. TRIAMCINOLONE ACETONIDE [Suspect]
     Indication: NEUROMA
     Route: 045
     Dates: start: 19960810
  9. TRIAMCINOLONE ACETONIDE [Suspect]
     Indication: PLANTAR FASCIITIS
     Route: 045
     Dates: start: 19960810

REACTIONS (10)
  - BALANCE DISORDER [None]
  - COLOSTOMY CLOSURE [None]
  - DYSPNOEA [None]
  - FALL [None]
  - HEADACHE [None]
  - ILL-DEFINED DISORDER [None]
  - IRRITABLE BOWEL SYNDROME [None]
  - PAIN [None]
  - PAIN IN EXTREMITY [None]
  - POST PROCEDURAL COMPLICATION [None]
